FAERS Safety Report 17653703 (Version 1)
Quarter: 2020Q2

REPORT INFORMATION
  Report Type: Spontaneous
  Country: US (occurrence: US)
  Receive Date: 20200410
  Receipt Date: 20200410
  Transmission Date: 20200713
  Serious: No
  Sender: FDA-Public Use
  Company Number: US-SA-2020SA089103

PATIENT
  Age: 35 Year
  Sex: Male

DRUGS (2)
  1. LANTUS SOLOSTAR [Suspect]
     Active Substance: INSULIN GLARGINE
     Indication: TYPE 2 DIABETES MELLITUS
     Dosage: 20-30 UNITS EACH DAY
     Route: 065
  2. LISINOPRIL. [Suspect]
     Active Substance: LISINOPRIL
     Dosage: UNK
     Route: 065

REACTIONS (5)
  - Blood glucose decreased [Unknown]
  - Incorrect dose administered [Unknown]
  - Chest pain [Unknown]
  - Anxiety [Unknown]
  - Inappropriate schedule of product administration [Unknown]
